FAERS Safety Report 21814330 (Version 4)
Quarter: 2023Q2

REPORT INFORMATION
  Report Type: Report from Study
  Country: SK (occurrence: SK)
  Receive Date: 20230104
  Receipt Date: 20230408
  Transmission Date: 20230721
  Serious: Yes (Hospitalization, Other)
  Sender: FDA-Public Use
  Company Number: SK-JNJFOC-20221265522

PATIENT
  Sex: Male

DRUGS (2)
  1. IMBRUVICA [Suspect]
     Active Substance: IBRUTINIB
     Indication: Mantle cell lymphoma
     Route: 048
     Dates: start: 201910, end: 20230207
  2. IMBRUVICA [Suspect]
     Active Substance: IBRUTINIB
     Indication: Mantle cell lymphoma
     Dosage: LAST ADMIN DATE: 2023
     Route: 048
     Dates: start: 20230209

REACTIONS (3)
  - Lung disorder [Recovered/Resolved]
  - Arrhythmia [Unknown]
  - Cardiac pacemaker insertion [Recovering/Resolving]

NARRATIVE: CASE EVENT DATE: 20221215
